FAERS Safety Report 9648428 (Version 2)
Quarter: 2013Q4

REPORT INFORMATION
  Report Type: Spontaneous
  Country: ZA (occurrence: ZA)
  Receive Date: 20131028
  Receipt Date: 20131105
  Transmission Date: 20140711
  Serious: Yes (Other)
  Sender: FDA-Public Use
  Company Number: ZA-NOVOPROD-390584

PATIENT
  Sex: Female

DRUGS (2)
  1. PROTAPHANE FLEXPEN [Suspect]
     Indication: GESTATIONAL DIABETES
     Dosage: 30 IU, SINGLE (AT NIGHT)
     Route: 065
     Dates: start: 201304
  2. NOVORAPID FLEXPEN [Suspect]
     Indication: GESTATIONAL DIABETES
     Dosage: 24 IU, TID
     Route: 065
     Dates: start: 201304

REACTIONS (3)
  - Abortion spontaneous [Unknown]
  - Exposure during pregnancy [Unknown]
  - Blood glucose increased [Unknown]
